FAERS Safety Report 5682363-2 (Version None)
Quarter: 2008Q1

REPORT INFORMATION
  Report Type: 
  Country: None (occurrence: None)
  Receive Date: 20080327
  Receipt Date: 20080318
  Transmission Date: 20080703
  Serious: Yes (Hospitalization)
  Sender: FDA-Public Use
  Company Number: CA-JNJFOC-20080304812

PATIENT
  Sex: Female
  Weight: 56 kg

DRUGS (4)
  1. REMICADE [Suspect]
     Indication: RHEUMATOID ARTHRITIS
     Dosage: 67 DOSES
     Route: 042
  2. PREDNISONE TAB [Concomitant]
     Indication: PREMEDICATION
  3. AERIUS [Concomitant]
     Indication: PREMEDICATION
  4. TYLENOL (CAPLET) [Concomitant]
     Indication: PREMEDICATION
     Route: 048

REACTIONS (6)
  - ASTHENIA [None]
  - BODY TEMPERATURE INCREASED [None]
  - FAECAL INCONTINENCE [None]
  - FATIGUE [None]
  - HEART RATE INCREASED [None]
  - WHITE BLOOD CELL COUNT INCREASED [None]
